FAERS Safety Report 7290711-5 (Version None)
Quarter: 2011Q1

REPORT INFORMATION
  Report Type: 
  Country: None (occurrence: None)
  Receive Date: 20110214
  Receipt Date: 20110131
  Transmission Date: 20110831
  Serious: Yes (Other)
  Sender: FDA-Public Use
  Company Number: CA-CELGENEUS-028-C5013-10113187

PATIENT
  Sex: Female
  Weight: 72 kg

DRUGS (16)
  1. CC-5013 [Suspect]
     Route: 048
     Dates: start: 20100615
  2. RED BLOOD CELLS [Concomitant]
     Indication: ANAEMIA
     Dosage: 2 BAGS
     Route: 051
     Dates: start: 20100622, end: 20100622
  3. LOPERAMIDE [Concomitant]
     Indication: DIARRHOEA
     Route: 048
     Dates: start: 20101009
  4. CIPRO [Concomitant]
     Indication: URINARY TRACT INFECTION
     Route: 048
     Dates: start: 20100621, end: 20100625
  5. PROCHLORPERAZINE [Concomitant]
     Indication: NAUSEA
     Route: 048
     Dates: start: 20100618
  6. CC-5013 [Suspect]
     Route: 048
     Dates: start: 20101102, end: 20101129
  7. LIPITOR [Concomitant]
     Indication: HYPERCHOLESTEROLAEMIA
     Dates: start: 20101102
  8. LOZIDE [Concomitant]
     Indication: HYPERTENSION
     Route: 048
     Dates: start: 19950101
  9. CIPRO [Concomitant]
     Route: 048
     Dates: start: 20101119, end: 20101123
  10. ADALAT [Concomitant]
     Indication: HYPERTENSION
     Route: 048
     Dates: start: 19950101
  11. NOVASEN [Concomitant]
     Indication: CARDIOVASCULAR EVENT PROPHYLAXIS
     Route: 048
     Dates: start: 20000101
  12. ALLOPURINOL [Concomitant]
     Indication: PROPHYLAXIS
     Route: 048
     Dates: start: 20100612
  13. ALLOPURINOL [Concomitant]
     Route: 048
     Dates: start: 20101026
  14. CC-5013 [Suspect]
     Route: 048
     Dates: start: 20101130
  15. SYNTHROID [Concomitant]
     Indication: HYPOTHYROIDISM
     Route: 048
     Dates: start: 19900101
  16. ACETAMINOPHEN [Concomitant]
     Indication: PYREXIA
     Route: 048
     Dates: start: 20100618, end: 20100620

REACTIONS (1)
  - MACULOPATHY [None]
